FAERS Safety Report 9937151 (Version 1)
Quarter: 2014Q1

REPORT INFORMATION
  Report Type: Spontaneous
  Country: FI (occurrence: FI)
  Receive Date: 20140301
  Receipt Date: 20140301
  Transmission Date: 20141002
  Serious: Yes (Other)
  Sender: FDA-Public Use
  Company Number: FI-ASTRAZENECA-2014SE13273

PATIENT
  Age: 61 Year
  Sex: Female

DRUGS (4)
  1. ARIMIDEX [Suspect]
     Indication: BREAST CANCER
     Route: 048
     Dates: start: 20130620
  2. CALCIUM [Concomitant]
     Route: 048
  3. MELATONIN [Concomitant]
     Route: 048
  4. OTHER TREATMENTS [Concomitant]

REACTIONS (7)
  - Mass [Unknown]
  - Feeling cold [Unknown]
  - Mucosal dryness [Unknown]
  - Hot flush [Unknown]
  - Eczema [Not Recovered/Not Resolved]
  - Arthralgia [Unknown]
  - Joint stiffness [Unknown]
